FAERS Safety Report 20255651 (Version 1)
Quarter: 2021Q4

REPORT INFORMATION
  Report Type: Spontaneous
  Country: IR (occurrence: IR)
  Receive Date: 20211230
  Receipt Date: 20211230
  Transmission Date: 20220303
  Serious: Yes (Death, Hospitalization, Other)
  Sender: FDA-Public Use
  Company Number: IR-Accord-248337

PATIENT
  Age: 7 Year
  Sex: Female

DRUGS (4)
  1. ETOPOSIDE [Suspect]
     Active Substance: ETOPOSIDE
     Indication: Acute myeloid leukaemia
     Dosage: DAY 3, 5, AND 7
     Dates: start: 20201007
  2. CYTARABINE [Suspect]
     Active Substance: CYTARABINE
     Indication: Acute myeloid leukaemia
     Dosage: 300  MG/M2 AS LOADING DOSE DAY 1 AND 2 AND CONTINUED BY 150  MG/M2 FROM DAY 3
     Dates: start: 20201007
  3. IDARUBICIN [Suspect]
     Active Substance: IDARUBICIN
     Indication: Acute myeloid leukaemia
     Dosage: 0.5 MG/KG; DAY 3, 5, AND 7
     Dates: start: 20201007
  4. DEXAMETHASONE [Suspect]
     Active Substance: DEXAMETHASONE
     Indication: Acute myeloid leukaemia
     Dosage: 1.5 MG/8 H
     Dates: start: 20201007

REACTIONS (6)
  - Mucormycosis [Fatal]
  - Neutropenic colitis [Fatal]
  - Sepsis [Unknown]
  - Disseminated intravascular coagulation [Unknown]
  - Candida infection [Unknown]
  - Mucosal inflammation [Unknown]
